FAERS Safety Report 10045762 (Version 1)
Quarter: 2014Q1

REPORT INFORMATION
  Report Type: Spontaneous
  Country: US (occurrence: None)
  Receive Date: 20140306
  Receipt Date: 20140306
  Transmission Date: 20141002
  Serious: Yes (Other)
  Sender: FDA-Public Use
  Company Number: 163-21880-13054678

PATIENT
  Age: 56 Year
  Sex: Female
  Weight: 104.33 kg

DRUGS (11)
  1. REVLIMID (LENALIDOMIDE) (CAPSULES) [Suspect]
     Indication: PLASMA CELL MYELOMA
     Route: 048
     Dates: start: 20110115
  2. LACTULOSE (LACTULOSE) [Concomitant]
  3. DILAUDID (HYDROMORPHONE HYDROCHLORIDE) (TABLETS) [Concomitant]
  4. ACYCLOVIR (ACICLOVIR) (TABLETS) [Concomitant]
  5. VALIUM (DIAZEPAM) (TABLETS) [Concomitant]
  6. SYNTHROID (LEVOTHYROXINE SODIUM) (TABLETS) [Concomitant]
  7. FENTANYL (FENTANYL) [Concomitant]
  8. ZOMETA (ZOLEDRONIC ACID) [Concomitant]
  9. PROCHLORPERAZINE (PROCHLORPERAZINE) [Concomitant]
  10. ADVAIR DISKUS [Concomitant]
  11. DILTIAZEM (DILTIAZEM) [Concomitant]

REACTIONS (2)
  - Thrombosis [None]
  - Diarrhoea [None]
